FAERS Safety Report 20178947 (Version 1)
Quarter: 2021Q4

REPORT INFORMATION
  Report Type: Spontaneous
  Country: US (occurrence: US)
  Receive Date: 20211214
  Receipt Date: 20211214
  Transmission Date: 20220303
  Serious: Yes (Death)
  Sender: FDA-Public Use
  Company Number: US-Melinta Therapeutics, LLC-US-MLNT-21-00168

PATIENT
  Sex: Female

DRUGS (2)
  1. VABOMERE [Suspect]
     Active Substance: MEROPENEM\VABORBACTAM
     Indication: Klebsiella infection
     Dosage: 60 ML/MIN
     Route: 041
  2. VABOMERE [Suspect]
     Active Substance: MEROPENEM\VABORBACTAM
     Indication: Urinary tract infection

REACTIONS (2)
  - Death [Fatal]
  - Drug ineffective [Fatal]
